FAERS Safety Report 7181807-7 (Version None)
Quarter: 2010Q4

REPORT INFORMATION
  Report Type: 
  Country: None (occurrence: None)
  Receive Date: 20101221
  Receipt Date: 20100501
  Transmission Date: 20110411
  Serious: No
  Sender: FDA-Public Use
  Company Number: US-AMGEN-KDL409941

PATIENT

DRUGS (3)
  1. ENBREL [Suspect]
     Indication: RHEUMATOID ARTHRITIS
     Dosage: 25 MG, 2 TIMES/WK
     Route: 058
     Dates: start: 20040801
  2. LISINOPRIL [Concomitant]
  3. LOSARTAN POTASSIUM [Concomitant]

REACTIONS (6)
  - ASTHMA [None]
  - COUGH [None]
  - HEADACHE [None]
  - LIMB INJURY [None]
  - MALAISE [None]
  - SKIN LACERATION [None]
